FAERS Safety Report 21103821 (Version 1)
Quarter: 2022Q3

REPORT INFORMATION
  Report Type: Spontaneous
  Country: DE (occurrence: DE)
  Receive Date: 20220720
  Receipt Date: 20220720
  Transmission Date: 20221027
  Serious: Yes (Death)
  Sender: FDA-Public Use
  Company Number: DE-EMBRYOTOX-202104559

PATIENT
  Sex: Female
  Weight: 60 kg

DRUGS (7)
  1. VENLAFAXINE [Suspect]
     Active Substance: VENLAFAXINE HYDROCHLORIDE
     Indication: Depression
     Dosage: 0. - 27.3. GESTATIONAL WEEK
     Route: 065
     Dates: start: 20210120, end: 20210731
  2. LITHIUM CARBONATE [Suspect]
     Active Substance: LITHIUM CARBONATE
     Indication: Depression
     Dosage: 450 MILLIGRAM, BID 13.1. - 27.3. GESTATIONAL WEEK
     Route: 065
     Dates: start: 20210422, end: 20210731
  3. QUETIAPINE [Suspect]
     Active Substance: QUETIAPINE
     Indication: Depression
     Dosage: 25 MILLIGRAM, TID 8.6. - 23.2. GESTATIONAL WEEK
     Route: 065
     Dates: start: 20210323, end: 20210702
  4. tavor [Concomitant]
     Indication: Depression
     Dosage: 13. - 13. GESTATIONAL WEEK
     Route: 065
     Dates: start: 20210421, end: 20210421
  5. FLECAINIDE [Concomitant]
     Active Substance: FLECAINIDE
     Indication: Tachycardia foetal
     Dosage: 23.1. - 27.2. GESTATIONAL WEEK
     Route: 065
     Dates: start: 20210701, end: 20210730
  6. AMIODARONE [Concomitant]
     Active Substance: AMIODARONE
     Indication: Tachycardia foetal
     Dosage: 2 DOSAGE FORM SINGLE 26.5. - 27.2. GESTATIONAL WEEK
     Route: 065
     Dates: start: 20210726, end: 20210730
  7. METOPROLOL SUCCINATE [Concomitant]
     Active Substance: METOPROLOL SUCCINATE
     Indication: Tachycardia foetal
     Dosage: 95 MILLIGRAM, DAILY 95 [MG/D (2X 47.5) ]
     Route: 065
     Dates: start: 20210701, end: 20210730

REACTIONS (2)
  - Foetal death [Fatal]
  - Maternal exposure during pregnancy [Unknown]
